FAERS Safety Report 6888926-0 (Version None)
Quarter: 2010Q3

REPORT INFORMATION
  Report Type: 
  Country: None (occurrence: None)
  Receive Date: 20100730
  Receipt Date: 20100729
  Transmission Date: 20110219
  Serious: Yes (Life-Threatening, Hospitalization, Other)
  Sender: FDA-Public Use
  Company Number: DE-MERCK-1007DEU00130

PATIENT
  Age: 89 Year
  Sex: Male
  Weight: 92 kg

DRUGS (4)
  1. ZOCOR [Suspect]
     Route: 048
     Dates: start: 20080101, end: 20100401
  2. AMIODARONE HYDROCHLORIDE [Suspect]
     Route: 048
     Dates: start: 20000101, end: 20100305
  3. AMIODARONE HYDROCHLORIDE [Suspect]
     Route: 048
     Dates: start: 20100306, end: 20100313
  4. AMIODARONE HYDROCHLORIDE [Suspect]
     Route: 048
     Dates: start: 20100314

REACTIONS (1)
  - RENAL FAILURE ACUTE [None]
